FAERS Safety Report 25286989 (Version 2)
Quarter: 2025Q2

REPORT INFORMATION
  Report Type: Spontaneous
  Country: US (occurrence: US)
  Receive Date: 20250509
  Receipt Date: 20250620
  Transmission Date: 20250717
  Serious: Yes (Death, Life-Threatening, Other)
  Sender: MACLEODS
  Company Number: US-MACLEODS PHARMA-MAC2025052947

PATIENT

DRUGS (8)
  1. APIXABAN [Suspect]
     Active Substance: APIXABAN
     Indication: Aortic thrombosis
     Dosage: ELIQUIS, BRISTOL-MYERS SQUIBB / PFIZER (10 MG TOTAL PER DAY), HELD DURING HOSPITALIZATION DUE TO DIC
     Route: 048
     Dates: start: 20240325, end: 20240425
  2. PIPERACILLIN SODIUM\TAZOBACTAM SODIUM [Concomitant]
     Active Substance: PIPERACILLIN SODIUM\TAZOBACTAM SODIUM
     Indication: Pneumonia
     Route: 042
  3. VANCOMYCIN [Concomitant]
     Active Substance: VANCOMYCIN
     Indication: Pneumonia
     Route: 065
  4. LACTULOSE [Concomitant]
     Active Substance: LACTULOSE
     Indication: Hyperammonaemia
     Route: 065
  5. RIFAXIMIN [Concomitant]
     Active Substance: RIFAXIMIN
     Indication: Hyperammonaemia
     Route: 065
  6. LEVOCARNITINE [Concomitant]
     Active Substance: LEVOCARNITINE
     Indication: Hyperammonaemia
     Route: 042
  7. CLOPIDOGREL [Concomitant]
     Active Substance: CLOPIDOGREL BISULFATE
     Indication: Product used for unknown indication
     Route: 065
  8. ATORVASTATIN [Concomitant]
     Active Substance: ATORVASTATIN
     Indication: Product used for unknown indication
     Route: 065

REACTIONS (11)
  - Multiple organ dysfunction syndrome [Fatal]
  - Lactic acidosis [Unknown]
  - Cardiomyopathy [Unknown]
  - Hypotension [Unknown]
  - Disseminated intravascular coagulation [Unknown]
  - Aortic rupture [Unknown]
  - Peripheral artery occlusion [Unknown]
  - Renal infarct [Unknown]
  - Intestinal infarction [Unknown]
  - Treatment failure [Unknown]
  - Condition aggravated [Unknown]
